FAERS Safety Report 9356675 (Version 1)
Quarter: 2013Q2

REPORT INFORMATION
  Report Type: Spontaneous
  Country: SE (occurrence: SE)
  Receive Date: 20130619
  Receipt Date: 20130619
  Transmission Date: 20140414
  Serious: Yes (Other)
  Sender: FDA-Public Use
  Company Number: SE-MYLANLABS-2013S1012751

PATIENT
  Age: 59 Year
  Sex: Female

DRUGS (3)
  1. AZATHIOPRINE [Suspect]
     Indication: COLITIS
     Dosage: GRADUALLY INCREASED TO 200 MG/D (2.1 MG/KG BW/D)
     Route: 065
     Dates: start: 201005
  2. MERCAPTOPURINE [Suspect]
     Indication: COLITIS
     Dosage: INCREASED TO 100 MG/D
     Route: 065
  3. SULFASALAZINE [Concomitant]
     Indication: COLITIS
     Route: 048

REACTIONS (2)
  - Hepatotoxicity [Recovered/Resolved]
  - Fatigue [Unknown]
